FAERS Safety Report 9032761 (Version 1)
Quarter: 2013Q1

REPORT INFORMATION
  Report Type: Spontaneous
  Country: US (occurrence: US)
  Receive Date: 20130128
  Receipt Date: 20130128
  Transmission Date: 20140127
  Serious: No
  Sender: FDA-Public Use
  Company Number: US-BIOGENIDEC-2013BI004826

PATIENT
  Age: 33 Year
  Sex: Male

DRUGS (1)
  1. TYSABRI [Suspect]
     Indication: MULTIPLE SCLEROSIS
     Route: 042
     Dates: start: 20120402

REACTIONS (4)
  - Respiratory tract congestion [Recovered/Resolved]
  - Ear congestion [Recovered/Resolved]
  - Sinus headache [Recovered/Resolved]
  - Nasopharyngitis [Recovered/Resolved]
